FAERS Safety Report 5492081-1 (Version None)
Quarter: 2007Q4

REPORT INFORMATION
  Report Type: 
  Country: None (occurrence: None)
  Receive Date: 20071022
  Receipt Date: 20071017
  Transmission Date: 20080405
  Serious: Yes (Disabling)
  Sender: FDA-Public Use
  Company Number: FR-MERCK-0709FRA00032

PATIENT
  Age: 66 Year
  Sex: Female

DRUGS (3)
  1. FOSAMAX PLUS D [Suspect]
     Indication: OSTEOPOROSIS
     Route: 048
     Dates: start: 20070819, end: 20070902
  2. INSULIN [Concomitant]
     Indication: TYPE 1 DIABETES MELLITUS
     Route: 051
  3. FLUTICASONE PROPIONATE [Concomitant]
     Indication: ASTHMA

REACTIONS (7)
  - ANKLE FRACTURE [None]
  - BLOOD ALKALINE PHOSPHATASE INCREASED [None]
  - FALL [None]
  - MALAISE [None]
  - PAIN [None]
  - PYELONEPHRITIS [None]
  - TRANSAMINASES INCREASED [None]
